FAERS Safety Report 18693880 (Version 1)
Quarter: 2021Q1

REPORT INFORMATION
  Report Type: Report from Study
  Country: DE (occurrence: DE)
  Receive Date: 20210104
  Receipt Date: 20210104
  Transmission Date: 20210419
  Serious: Yes (Other)
  Sender: FDA-Public Use
  Company Number: DE-PFIZER INC-2020519718

PATIENT
  Age: 66 Year
  Sex: Male

DRUGS (16)
  1. MESNA. [Concomitant]
     Active Substance: MESNA
     Indication: PROPHYLAXIS
     Dosage: UNK
  2. METHOTREXATE SODIUM. [Suspect]
     Active Substance: METHOTREXATE SODIUM
     Dosage: INTRAVENTRICULAR, 3 MG, DAY 1,2,3,4, CYCLE A AND B
     Route: 020
  3. CYTARABINE. [Suspect]
     Active Substance: CYTARABINE
     Dosage: INTRAVENTRICULAR 30 MG, DAY 7, CYCLE C
     Route: 020
  4. IFOSFAMIDE. [Suspect]
     Active Substance: IFOSFAMIDE
     Indication: CENTRAL NERVOUS SYSTEM LYMPHOMA
     Dosage: 2 MG, DAY 1,2,3,4,5 (800 MG/M^2 BSA) (OVER 1 HR VIA INFUSION), CYCLE A
     Route: 042
  5. DEXAMETHASONE. [Suspect]
     Active Substance: DEXAMETHASONE
     Dosage: 20 MG/M2 BSA, DAY 1,2,3,4,5, CYCLE C
     Route: 048
  6. PREDNISOLONE. [Suspect]
     Active Substance: PREDNISOLONE
     Dosage: INTRAVENTRICULAR, 2.5 MG, DAY 3,4,5,6, CYCLE C
     Route: 020
  7. CYCLOPHOSPHAMIDE. [Suspect]
     Active Substance: CYCLOPHOSPHAMIDE
     Indication: CENTRAL NERVOUS SYSTEM LYMPHOMA
     Dosage: 200 MG/M2 BSA OVER 1 HR VIA INFUSION, DAY 2, 3, 4, 5, CYCLE B
     Route: 042
  8. VINDESINE [Suspect]
     Active Substance: VINDESINE
     Indication: CENTRAL NERVOUS SYSTEM LYMPHOMA
     Dosage: 5 MG, DAY 1, CYCLE C
     Route: 042
  9. VINCRISTINE SULFATE. [Suspect]
     Active Substance: VINCRISTINE SULFATE
     Indication: CENTRAL NERVOUS SYSTEM LYMPHOMA
     Dosage: DAY 1, CYCLE A
     Route: 042
  10. CYTARABINE. [Suspect]
     Active Substance: CYTARABINE
     Dosage: 3 G/M2 BSA, OVER 3 HR VIA INFUSION, DAY 1,2, CYCLE C
     Route: 042
  11. VINCRISTINE SULFATE. [Suspect]
     Active Substance: VINCRISTINE SULFATE
     Dosage: 2 MG, DAY 1, CYCLE B
     Route: 042
  12. CYTARABINE. [Suspect]
     Active Substance: CYTARABINE
     Indication: CENTRAL NERVOUS SYSTEM LYMPHOMA
     Dosage: INTRAVENTRICULAR 30 MG, DAY 5, CYCLE A AND B
     Route: 020
  13. PREDNISOLONE. [Suspect]
     Active Substance: PREDNISOLONE
     Indication: CENTRAL NERVOUS SYSTEM LYMPHOMA
     Dosage: INTRAVENTRICULAR, 2.5 MG, DAY 1,2,3,4, CYCLE A AND B
     Route: 020
  14. METHOTREXATE SODIUM. [Suspect]
     Active Substance: METHOTREXATE SODIUM
     Indication: CENTRAL NERVOUS SYSTEM LYMPHOMA
     Dosage: 5 G/M2 BSA OVER 30 MIN AND 4.5 G/M2 BSA OVER 23.5 HR VIA INFUSION, DAY 1, CYCLE A AND B
     Route: 042
  15. METHOTREXATE SODIUM. [Suspect]
     Active Substance: METHOTREXATE SODIUM
     Dosage: INTRAVENTRICULAR, 3 MG, DAY 3,4,5,6, CYCLE C
     Route: 020
  16. DEXAMETHASONE. [Suspect]
     Active Substance: DEXAMETHASONE
     Indication: CENTRAL NERVOUS SYSTEM LYMPHOMA
     Dosage: 10 MG/M2 BSA, DAY 1,2,3,4,5, CYCLE A AND B
     Route: 048

REACTIONS (4)
  - Deep vein thrombosis [Unknown]
  - Venous thrombosis limb [Unknown]
  - Thrombocytopenia [Unknown]
  - Leukopenia [Unknown]
